FAERS Safety Report 4706498-3 (Version None)
Quarter: 2005Q3

REPORT INFORMATION
  Report Type: 
  Country: None (occurrence: None)
  Receive Date: 20050705
  Receipt Date: 20050628
  Transmission Date: 20060218
  Serious: Yes (Hospitalization)
  Sender: FDA-Public Use
  Company Number: JP-GLAXOSMITHKLINE-B0386456A

PATIENT
  Age: 54 Year
  Sex: Female
  Weight: 30 kg

DRUGS (8)
  1. VALTREX [Suspect]
     Indication: HERPES ZOSTER
     Dosage: 500MG PER DAY
     Route: 048
     Dates: start: 20050623, end: 20050624
  2. PREDONINE [Concomitant]
     Route: 048
  3. THYRADIN S [Concomitant]
     Route: 048
  4. ROCALTROL [Concomitant]
     Route: 065
  5. CALTAN [Concomitant]
     Route: 048
  6. CYANOCOBALAMIN [Concomitant]
     Route: 065
  7. TAKEPRON [Concomitant]
     Route: 048
  8. DIGOSIN [Concomitant]
     Route: 065

REACTIONS (3)
  - DYSARTHRIA [None]
  - INSOMNIA [None]
  - RESTLESSNESS [None]
